FAERS Safety Report 5164328-2 (Version None)
Quarter: 2006Q4

REPORT INFORMATION
  Report Type: 
  Country: None (occurrence: None)
  Receive Date: 20061127
  Receipt Date: 20061127
  Transmission Date: 20070319
  Serious: Yes (Hospitalization)
  Sender: FDA-Public Use
  Company Number: None

PATIENT
  Age: 15 Year
  Sex: Female

DRUGS (4)
  1. MERCAPTOPURINE [Suspect]
     Indication: CROHN'S DISEASE
     Dosage: 7.5 MG ,1.5 TABS DAILY PO
     Route: 048
  2. FLAGYL [Concomitant]
  3. ASACOL [Concomitant]
  4. URSODIOL [Concomitant]

REACTIONS (1)
  - PANCREATITIS ACUTE [None]
